FAERS Safety Report 19995347 (Version 1)
Quarter: 2021Q4

REPORT INFORMATION
  Report Type: Spontaneous
  Country: GB (occurrence: GB)
  Receive Date: 20211025
  Receipt Date: 20211025
  Transmission Date: 20220304
  Serious: Yes (Other)
  Sender: FDA-Public Use
  Company Number: None

PATIENT
  Age: 32 Year
  Sex: Female
  Weight: 78 kg

DRUGS (2)
  1. LEVEMIR [Suspect]
     Active Substance: INSULIN DETEMIR
     Indication: Injection site atrophy
  2. LEVEMIR [Suspect]
     Active Substance: INSULIN DETEMIR
     Indication: Type 1 diabetes mellitus
     Dosage: 43.5 IU, QD (20 UNITS IN THE AM AND 23.5 UNITS IN THE PM)
     Route: 058

REACTIONS (4)
  - Lipoatrophy [Not Recovered/Not Resolved]
  - Device use error [Unknown]
  - Hyperglycaemia [Unknown]
  - Lack of injection site rotation [Unknown]
